FAERS Safety Report 9052192 (Version 3)
Quarter: 2013Q2

REPORT INFORMATION
  Report Type: Spontaneous
  Country: US (occurrence: US)
  Receive Date: 20130206
  Receipt Date: 20130520
  Transmission Date: 20140414
  Serious: Yes (Hospitalization)
  Sender: FDA-Public Use
  Company Number: US-BIOGENIDEC-2013BI011598

PATIENT
  Age: 40 Year
  Sex: Male

DRUGS (1)
  1. TYSABRI [Suspect]
     Indication: MULTIPLE SCLEROSIS
     Route: 042
     Dates: start: 20120809

REACTIONS (4)
  - Uhthoff^s phenomenon [Recovered/Resolved]
  - Bronchitis [Recovered/Resolved]
  - Pneumonia aspiration [Recovered/Resolved]
  - Sepsis [Recovered/Resolved]
